FAERS Safety Report 9189363 (Version 1)
Quarter: 2013Q1

REPORT INFORMATION
  Report Type: Spontaneous
  Country: US (occurrence: None)
  Receive Date: 20130322
  Receipt Date: 20130322
  Transmission Date: 20140127
  Serious: Yes (Hospitalization)
  Sender: FDA-Public Use
  Company Number: IPC201303-000080

PATIENT
  Age: 60 Year
  Sex: Male

DRUGS (7)
  1. METOPROLOL TARTRATE [Suspect]
  2. LIDOCAINE [Suspect]
     Route: 061
  3. WARFARIN [Concomitant]
  4. LISINOPRIL [Concomitant]
  5. DOCUSATE SODIUM [Concomitant]
  6. POTASSIUM CHLORIDE [Concomitant]
  7. FUROSEMIDE [Concomitant]

REACTIONS (8)
  - Ataxia [None]
  - Diplopia [None]
  - Toxicity to various agents [None]
  - Drug interaction [None]
  - Heart rate irregular [None]
  - Local swelling [None]
  - Atrial fibrillation [None]
  - Cardiac failure congestive [None]
